FAERS Safety Report 19474384 (Version 1)
Quarter: 2021Q2

REPORT INFORMATION
  Report Type: Spontaneous
  Country: NL (occurrence: NL)
  Receive Date: 20210629
  Receipt Date: 20210629
  Transmission Date: 20210717
  Serious: Yes (Other)
  Sender: FDA-Public Use
  Company Number: NL-MYLANLABS-2021M1037987

PATIENT
  Age: 43 Year
  Sex: Female
  Weight: 53 kg

DRUGS (2)
  1. BISOPROLOL MYLAN [Suspect]
     Active Substance: BISOPROLOL
     Indication: PALPITATIONS
  2. BISOPROLOL MYLAN [Suspect]
     Active Substance: BISOPROLOL
     Indication: HYPERTENSION
     Dosage: , BID (TWICE DAILY 1 PIECE)
     Dates: start: 2019, end: 20210214

REACTIONS (2)
  - Psoriasis [Recovered/Resolved]
  - Porokeratosis [Recovered/Resolved]

NARRATIVE: CASE EVENT DATE: 20190601
